FAERS Safety Report 15157553 (Version 2)
Quarter: 2018Q3

REPORT INFORMATION
  Report Type: Spontaneous
  Country: EG (occurrence: EG)
  Receive Date: 20180718
  Receipt Date: 20180726
  Transmission Date: 20181010
  Serious: Yes (Death, Hospitalization)
  Sender: FDA-Public Use
  Company Number: EG-ROCHE-2152183

PATIENT
  Age: 64 Year
  Sex: Male

DRUGS (1)
  1. ALECENSA [Suspect]
     Active Substance: ALECTINIB HYDROCHLORIDE
     Indication: NON-SMALL CELL LUNG CANCER
     Route: 065

REACTIONS (5)
  - Oedema [Fatal]
  - Interstitial lung disease [Fatal]
  - Bradycardia [Fatal]
  - Necrosis [Fatal]
  - Medication error [Fatal]
